FAERS Safety Report 13394419 (Version 1)
Quarter: 2017Q2

REPORT INFORMATION
  Report Type: Report from Study
  Country: None (occurrence: CA)
  Receive Date: 20170402
  Receipt Date: 20170402
  Transmission Date: 20170830
  Serious: Yes (Other)
  Sender: FDA-Public Use
  Company Number: CA-ABBVIE-17P-028-1919704-00

PATIENT
  Sex: Male

DRUGS (1)
  1. ADALIMUMAB [Suspect]
     Active Substance: ADALIMUMAB
     Indication: CROHN^S DISEASE
     Route: 058
     Dates: start: 20161220

REACTIONS (2)
  - Fistula [Not Recovered/Not Resolved]
  - Fatigue [Not Recovered/Not Resolved]
